FAERS Safety Report 8276313-2 (Version None)
Quarter: 2012Q2

REPORT INFORMATION
  Report Type: 
  Country: None (occurrence: None)
  Receive Date: 20120412
  Receipt Date: 20120406
  Transmission Date: 20120825
  Serious: Yes (Other)
  Sender: FDA-Public Use
  Company Number: PHEH2012US007568

PATIENT
  Sex: Male

DRUGS (6)
  1. GEODON [Suspect]
     Dosage: 60MG IN THE MORNING AND 120MG IN THE NIGHT
  2. GEODON [Suspect]
     Indication: BIPOLAR DISORDER
     Dosage: 40 MG, DAILY
     Dates: start: 20110201
  3. TEGRETOL [Suspect]
     Indication: PSYCHOTIC DISORDER
     Dosage: 1600 MG, DAILY
     Dates: start: 20110301
  4. KLONOPIN [Concomitant]
     Indication: ANXIETY
     Dosage: 2 MG, DAILY
  5. LISINOPRIL [Concomitant]
     Indication: BLOOD PRESSURE ABNORMAL
     Dosage: 20 MG, DAILY
  6. LAMICTAL [Concomitant]
     Indication: AFFECTIVE DISORDER
     Dosage: 100 MG, BID

REACTIONS (6)
  - SPEECH DISORDER [None]
  - VISUAL IMPAIRMENT [None]
  - PSYCHIATRIC SYMPTOM [None]
  - DIZZINESS [None]
  - GAIT DISTURBANCE [None]
  - SOMNOLENCE [None]
